FAERS Safety Report 5447633-1 (Version None)
Quarter: 2007Q3

REPORT INFORMATION
  Report Type: 
  Country: None (occurrence: None)
  Receive Date: 20070906
  Receipt Date: 20070906
  Transmission Date: 20080115
  Serious: Yes (Hospitalization)
  Sender: FDA-Public Use
  Company Number: None

PATIENT
  Sex: Male
  Weight: 76.4 kg

DRUGS (1)
  1. RAPTIVA [Suspect]
     Indication: PSORIASIS
     Dosage: 0.7 MG/KG SUBQ X 1 FROM 1MG/KG SUBQ WEEKLY 3-4 MONTHS
     Route: 058

REACTIONS (4)
  - LYMPHOCYTOSIS [None]
  - NECK MASS [None]
  - NEUTROPENIA [None]
  - THROMBOCYTOPENIA [None]
